FAERS Safety Report 24394531 (Version 1)
Quarter: 2024Q4

REPORT INFORMATION
  Report Type: Spontaneous
  Country: US (occurrence: US)
  Receive Date: 20241004
  Receipt Date: 20241004
  Transmission Date: 20250114
  Serious: Yes (Hospitalization)
  Sender: STERISCIENCE PTE
  Company Number: US-STERISCIENCE B.V.-2023-ST-002285

PATIENT
  Sex: Male

DRUGS (6)
  1. PIPERACILLIN SODIUM\TAZOBACTAM SODIUM [Suspect]
     Active Substance: PIPERACILLIN SODIUM\TAZOBACTAM SODIUM
     Indication: Abdominal infection
     Dosage: STARTED FOR ONE WEEK
     Route: 065
  2. PIPERACILLIN SODIUM\TAZOBACTAM SODIUM [Suspect]
     Active Substance: PIPERACILLIN SODIUM\TAZOBACTAM SODIUM
     Indication: Escherichia infection
  3. ERTAPENEM [Suspect]
     Active Substance: ERTAPENEM
     Indication: Abdominal infection
     Dosage: UNK
     Route: 065
  4. ERTAPENEM [Suspect]
     Active Substance: ERTAPENEM
     Indication: Escherichia infection
  5. AVIBACTAM SODIUM\CEFTAZIDIME [Suspect]
     Active Substance: AVIBACTAM SODIUM\CEFTAZIDIME
     Indication: Abdominal infection
     Dosage: STARTED FOR EIGHT WEEKS
     Route: 065
  6. AVIBACTAM SODIUM\CEFTAZIDIME [Suspect]
     Active Substance: AVIBACTAM SODIUM\CEFTAZIDIME
     Indication: Escherichia infection

REACTIONS (1)
  - Drug resistance [Unknown]
